FAERS Safety Report 14640591 (Version 1)
Quarter: 2018Q1

REPORT INFORMATION
  Report Type: Spontaneous
  Country: US (occurrence: US)
  Receive Date: 20180315
  Receipt Date: 20180315
  Transmission Date: 20180509
  Serious: Yes (Death, Hospitalization)
  Sender: FDA-Public Use
  Company Number: US-PFIZER INC-2018106613

PATIENT
  Age: 73 Year
  Sex: Female
  Weight: 40 kg

DRUGS (4)
  1. ATIVAN [Concomitant]
     Active Substance: LORAZEPAM
     Indication: DYSPNOEA
     Dosage: 0.5 MG, EVERY 4 HRS AS NEEDED
     Route: 042
     Dates: start: 20180216, end: 20180305
  2. MORPHINE [Concomitant]
     Active Substance: MORPHINE
     Indication: LUNG NEOPLASM MALIGNANT
     Dosage: 1 MG AN HOUR, AS NEEDED
     Route: 042
     Dates: start: 20180216, end: 20180305
  3. XALKORI [Suspect]
     Active Substance: CRIZOTINIB
     Indication: LUNG CANCER METASTATIC
     Dosage: 200 MG, TWICE A DAY
     Route: 048
     Dates: start: 201801, end: 20180301
  4. MORPHINE [Concomitant]
     Active Substance: MORPHINE
     Dosage: 0.5 MG BOLUS EVERY 20 MINUTES, AS NEEDED
     Route: 042
     Dates: start: 20180216, end: 20180305

REACTIONS (1)
  - Neoplasm progression [Fatal]
